FAERS Safety Report 10148799 (Version 1)
Quarter: 2014Q2

REPORT INFORMATION
  Report Type: Report from Study
  Country: BE (occurrence: BE)
  Receive Date: 20140502
  Receipt Date: 20140502
  Transmission Date: 20141212
  Serious: Yes (Disabling)
  Sender: FDA-Public Use
  Company Number: BE-AMGEN INC.-BELCT2014031314

PATIENT
  Age: 42 Year
  Sex: Male
  Weight: 57.5 kg

DRUGS (17)
  1. CINACALCET HCL [Suspect]
     Indication: HYPERPARATHYROIDISM SECONDARY
     Dosage: UNK
     Route: 065
     Dates: start: 20131118, end: 20140428
  2. DARBEPOETIN ALFA [Concomitant]
     Dosage: 20 MUG, UNK
     Route: 042
     Dates: start: 20130506
  3. SIMVASTATINE [Concomitant]
     Dosage: 40 MG, UNK
     Route: 048
     Dates: start: 20130405
  4. COLECALCIFEROL [Concomitant]
     Dosage: 25000 IU, UNK
     Route: 048
     Dates: start: 20131008
  5. METHYLPREDNISOLONE [Concomitant]
     Dosage: 4 MG, UNK
     Route: 048
     Dates: start: 20020216
  6. TACROLIMUS [Concomitant]
     Dosage: 1 MG, UNK
     Route: 048
     Dates: start: 20020216
  7. DIMETINDENE [Concomitant]
     Dosage: 1 MG, UNK
     Route: 048
     Dates: start: 20130628
  8. ALFACALCIDOL [Concomitant]
     Dosage: 1-2 MUG, UNK
     Route: 048
     Dates: start: 20140122
  9. CLOBETASOL [Concomitant]
     Dosage: 0.5 UNK, UNK
     Route: 061
     Dates: start: 20140214
  10. PNEUMO 23 [Concomitant]
     Dosage: 1 UNK, UNK
     Route: 030
     Dates: start: 20140414, end: 20140414
  11. IRON SUCROSE [Concomitant]
     Dosage: 100 MG, UNK
     Route: 042
     Dates: start: 20130506
  12. OMEPRAZOLE [Concomitant]
     Dosage: 20 MG, UNK
     Route: 048
     Dates: start: 20130405
  13. CALCIUM ACETATE [Concomitant]
     Dosage: 667 MG, UNK
     Route: 048
     Dates: start: 20130405
  14. ACETYLSALICYLIC ACID [Concomitant]
     Dosage: 80 MG, UNK
     Route: 048
     Dates: start: 20130405
  15. FOLIC ACID [Concomitant]
     Dosage: 4 MG, UNK
     Route: 048
     Dates: start: 20130405
  16. SODIUM BICARBONATE [Concomitant]
     Dosage: 3 G, UNK
     Route: 048
     Dates: start: 20130405
  17. METOPROLOL [Concomitant]
     Dosage: 200 MG, UNK
     Route: 048
     Dates: start: 20130405

REACTIONS (1)
  - Blindness unilateral [Not Recovered/Not Resolved]
